FAERS Safety Report 20895643 (Version 2)
Quarter: 2022Q2

REPORT INFORMATION
  Report Type: Spontaneous
  Country: US (occurrence: None)
  Receive Date: 20220531
  Receipt Date: 20220616
  Transmission Date: 20220721
  Serious: Yes (Other)
  Sender: FDA-Public Use
  Company Number: US-ROCHE-3104577

PATIENT
  Sex: Male

DRUGS (2)
  1. AUBAGIO [Suspect]
     Active Substance: TERIFLUNOMIDE
     Indication: Multiple sclerosis
     Dosage: DOSING REGIMEN NOT REPORTED
     Route: 065
  2. OMALIZUMAB [Suspect]
     Active Substance: OMALIZUMAB
     Indication: Product used for unknown indication
     Dosage: DOSING REGIMEN NOT REPORTED
     Route: 065

REACTIONS (6)
  - Condition aggravated [Unknown]
  - Feeling abnormal [Unknown]
  - Diplopia [Unknown]
  - Fatigue [Unknown]
  - Incontinence [Unknown]
  - Depression [Unknown]
